FAERS Safety Report 4585595-X (Version None)
Quarter: 2005Q1

REPORT INFORMATION
  Report Type: 
  Country: None (occurrence: None)
  Receive Date: 20050214
  Receipt Date: 20041007
  Transmission Date: 20050727
  Serious: Yes (Hospitalization)
  Sender: FDA-Public Use
  Company Number: 05-095

PATIENT
  Age: 55 Year
  Sex: Male

DRUGS (16)
  1. DEXAMETHASONE [Suspect]
     Indication: MULTIPLE MYELOMA
     Dosage: 40 MG/DAY, ORAL
     Route: 048
     Dates: start: 20030306, end: 20030309
  2. GENASENSE [Suspect]
     Indication: MULTIPLE MYELOMA
     Dosage: 7 MG/KG/DAY, INTRAVENOUS
     Route: 042
     Dates: start: 20030303, end: 20030310
  3. ALBUTEROL [Concomitant]
  4. CITALOPRAM [Concomitant]
  5. GEMFIBROZIL [Concomitant]
  6. TRIAMCINOLONE ACETONIDE [Concomitant]
  7. HYDROCHLOROTHIAZIDE [Concomitant]
  8. EPOETIN ALFA [Concomitant]
  9. PROCHLORPERAZINE [Concomitant]
  10. ACETAMINOPHEN W/ CODEINE [Concomitant]
  11. ACETAMINOPHEN [Concomitant]
  12. LOPERAMIDE HCL [Concomitant]
  13. PAMIDRONATE DISODIUM [Concomitant]
  14. TRIMETHOPRIM-SULFAMETHOXAZOLE [Concomitant]
  15. LEVOFLOXACIN [Concomitant]
  16. RANITIDINE [Concomitant]

REACTIONS (6)
  - DEHYDRATION [None]
  - MUSCULOSKELETAL CHEST PAIN [None]
  - ORAL CANDIDIASIS [None]
  - ORAL INTAKE REDUCED [None]
  - PAIN [None]
  - RENAL FAILURE ACUTE [None]
